FAERS Safety Report 12147021 (Version 1)
Quarter: 2016Q1

REPORT INFORMATION
  Report Type: Spontaneous
  Country: US (occurrence: US)
  Receive Date: 20160304
  Receipt Date: 20160304
  Transmission Date: 20160526
  Serious: Yes (Hospitalization, Other)
  Sender: FDA-Public Use
  Company Number: US-ACTAVISPR-ACTA037371

PATIENT
  Age: 80 Year
  Sex: Female

DRUGS (5)
  1. SORIATANE [Suspect]
     Active Substance: ACITRETIN
     Indication: PSORIASIS
     Dosage: 25 MG, UNK
     Route: 048
     Dates: start: 19890101
  2. SORIATANE [Suspect]
     Active Substance: ACITRETIN
     Dosage: 25 MG, DAILY
     Route: 048
     Dates: start: 1985
  3. SORIATANE [Suspect]
     Active Substance: ACITRETIN
     Dosage: 25 MG UNK
     Route: 048
     Dates: start: 1986
  4. SORIATANE [Suspect]
     Active Substance: ACITRETIN
     Indication: PSORIASIS
     Dosage: 25 MG, UNKNOWN
     Route: 048
     Dates: start: 1995
  5. SORIATANE [Suspect]
     Active Substance: ACITRETIN
     Indication: SKIN DISORDER
     Dosage: 10 MG, UNKNOWN
     Route: 048

REACTIONS (10)
  - Abasia [Unknown]
  - Skin reaction [Unknown]
  - Injury [Unknown]
  - Wrong patient received medication [Not Recovered/Not Resolved]
  - Malaise [Unknown]
  - Epistaxis [Unknown]
  - Diarrhoea [Unknown]
  - Cystitis [Unknown]
  - Blood disorder [Unknown]
  - Fall [Unknown]

NARRATIVE: CASE EVENT DATE: 201209
